FAERS Safety Report 25881197 (Version 4)
Quarter: 2025Q4

REPORT INFORMATION
  Report Type: Report from Study
  Country: CA (occurrence: CA)
  Receive Date: 20251004
  Receipt Date: 20251222
  Transmission Date: 20260118
  Serious: Yes (Other)
  Sender: IPSEN BIOPHARMACEUTICALS, INC.
  Company Number: CA-IPSEN Group, Research and Development-2025-12035

PATIENT
  Age: 75 Year
  Sex: Male

DRUGS (8)
  1. LANREOTIDE ACETATE [Suspect]
     Active Substance: LANREOTIDE ACETATE
     Indication: Gastroenteropancreatic neuroendocrine tumour disease
     Dosage: VIA DEEP SUBCUTANEOUS
     Route: 058
     Dates: start: 20190325
  2. LANREOTIDE ACETATE [Suspect]
     Active Substance: LANREOTIDE ACETATE
     Dosage: VIA DEEP SUBCUTANEOUS
     Route: 058
     Dates: start: 20250516
  3. LANREOTIDE ACETATE [Suspect]
     Active Substance: LANREOTIDE ACETATE
     Dosage: VIA DEEP SUBCUTANEOUS
     Route: 058
     Dates: start: 20250930
  4. LANREOTIDE ACETATE [Suspect]
     Active Substance: LANREOTIDE ACETATE
     Dosage: VIA DEEP SUBCUTANEOUS
     Route: 058
     Dates: start: 20251031
  5. SUNITINIB [Suspect]
     Active Substance: SUNITINIB
     Indication: Product used for unknown indication
     Dosage: 25 MG DIE
  6. SUNITINIB [Suspect]
     Active Substance: SUNITINIB
     Dosage: TAKING SUNITINIB 37.5MG SINCE APRIL OR MAY 2025
  7. SUNITINIB [Suspect]
     Active Substance: SUNITINIB
     Dosage: DOSE WAS DECREASED TO 12.5MG
  8. HYDROMORPHONE [Concomitant]
     Active Substance: HYDROMORPHONE
     Indication: Back pain

REACTIONS (6)
  - Neutropenia [Unknown]
  - Inappropriate schedule of product administration [Unknown]
  - Inappropriate schedule of product administration [Unknown]
  - Diarrhoea [Recovered/Resolved]
  - Abdominal pain [Recovered/Resolved]
  - Diarrhoea [Recovered/Resolved]

NARRATIVE: CASE EVENT DATE: 20250516
